FAERS Safety Report 8795314 (Version 2)
Quarter: 2015Q2

REPORT INFORMATION
  Report Type: Report from Study
  Country: US (occurrence: US)
  Receive Date: 20120918
  Receipt Date: 20150618
  Transmission Date: 20150821
  Serious: Yes (Death)
  Sender: FDA-Public Use
  Company Number: US-ROCHE-1129338

PATIENT
  Sex: Male

DRUGS (11)
  1. DECADRON [Concomitant]
     Active Substance: DEXAMETHASONE
     Route: 042
  2. ETOPOSIDE. [Concomitant]
     Active Substance: ETOPOSIDE
     Route: 048
  3. AVASTIN [Suspect]
     Active Substance: BEVACIZUMAB
     Route: 042
  4. AVASTIN [Suspect]
     Active Substance: BEVACIZUMAB
     Route: 042
  5. TEMODAR [Concomitant]
     Active Substance: TEMOZOLOMIDE
     Route: 048
  6. PROCRIT [Concomitant]
     Active Substance: ERYTHROPOIETIN
     Route: 042
  7. CAMPTOSAR [Concomitant]
     Active Substance: IRINOTECAN HYDROCHLORIDE
     Route: 065
  8. AVASTIN [Suspect]
     Active Substance: BEVACIZUMAB
     Indication: BRAIN NEOPLASM MALIGNANT
     Route: 042
     Dates: start: 20080403
  9. NAVELBINE [Concomitant]
     Active Substance: VINORELBINE TARTRATE
     Route: 042
  10. TEMODAR [Concomitant]
     Active Substance: TEMOZOLOMIDE
     Route: 048
  11. ALOXI [Concomitant]
     Active Substance: PALONOSETRON HYDROCHLORIDE
     Route: 065

REACTIONS (2)
  - Death [Fatal]
  - Off label use [Unknown]
